FAERS Safety Report 24463422 (Version 2)
Quarter: 2024Q4

REPORT INFORMATION
  Report Type: Spontaneous
  Country: JP (occurrence: JP)
  Receive Date: 20241018
  Receipt Date: 20241114
  Transmission Date: 20250114
  Serious: Yes (Life-Threatening, Hospitalization, Disabling, Other)
  Sender: BRISTOL-MYERS SQUIBB COMPANY
  Company Number: JP-BRISTOL-MYERS SQUIBB COMPANY-2024-163958

PATIENT
  Age: 82 Year
  Sex: Male
  Weight: 43 kg

DRUGS (67)
  1. OPDIVO [Suspect]
     Active Substance: NIVOLUMAB
     Indication: Oesophageal carcinoma
     Dosage: 480 MG, Q4W
     Route: 041
     Dates: start: 20231110, end: 20231208
  2. SODIUM BICARBONATE [Concomitant]
     Active Substance: SODIUM BICARBONATE
     Indication: Product used for unknown indication
     Dosage: 1 G, EVERYDAY
     Route: 048
     Dates: start: 20240120, end: 20240125
  3. SODIUM BICARBONATE [Concomitant]
     Active Substance: SODIUM BICARBONATE
     Dosage: 2 G, EVERYDAY
     Route: 048
     Dates: start: 20240126, end: 20240204
  4. SODIUM BICARBONATE [Concomitant]
     Active Substance: SODIUM BICARBONATE
     Dosage: 1 G, EVERYDAY
     Route: 048
     Dates: start: 20240205, end: 20240208
  5. SODIUM BICARBONATE [Concomitant]
     Active Substance: SODIUM BICARBONATE
     Dosage: 1 G, EVERYDAY
     Route: 048
     Dates: start: 20240216, end: 20240216
  6. SODIUM BICARBONATE [Concomitant]
     Active Substance: SODIUM BICARBONATE
     Dosage: 1 G, Q8H
     Route: 048
     Dates: start: 20231225, end: 20240105
  7. AMLODIPINE [Concomitant]
     Active Substance: AMLODIPINE BESYLATE
     Indication: Product used for unknown indication
     Dosage: TABLET, ORALLY DISINTEGRATING
     Route: 048
     Dates: start: 20240127, end: 20240216
  8. AMLODIPINE [Concomitant]
     Active Substance: AMLODIPINE BESYLATE
     Dosage: TABLET, ORALLY DISINTEGRATING
     Route: 048
     Dates: start: 20231225, end: 20240119
  9. AMLODIPINE [Concomitant]
     Active Substance: AMLODIPINE BESYLATE
     Dosage: TABLET, ORALLY DISINTEGRATING
     Route: 048
     Dates: start: 20240120, end: 20240124
  10. AMLODIPINE [Concomitant]
     Active Substance: AMLODIPINE BESYLATE
     Dosage: TABLET, ORALLY DISINTEGRATING
     Route: 048
     Dates: start: 20240125, end: 20240125
  11. AMLODIPINE [Concomitant]
     Active Substance: AMLODIPINE BESYLATE
     Dosage: TABLET, ORALLY DISINTEGRATING
     Route: 048
     Dates: start: 20240126, end: 20240126
  12. VONOPRAZAN FUMARATE [Concomitant]
     Active Substance: VONOPRAZAN FUMARATE
     Indication: Product used for unknown indication
     Dosage: TABLET, ORALLY DISINTEGRATING
     Route: 048
     Dates: start: 20240120, end: 20240124
  13. VONOPRAZAN FUMARATE [Concomitant]
     Active Substance: VONOPRAZAN FUMARATE
     Dosage: TABLET, ORALLY DISINTEGRATING
     Route: 048
     Dates: start: 20240125, end: 20240125
  14. VONOPRAZAN FUMARATE [Concomitant]
     Active Substance: VONOPRAZAN FUMARATE
     Dosage: TABLET, ORALLY DISINTEGRATING
     Route: 048
     Dates: start: 20240126, end: 20240126
  15. VONOPRAZAN FUMARATE [Concomitant]
     Active Substance: VONOPRAZAN FUMARATE
     Dosage: TABLET, ORALLY DISINTEGRATING
     Route: 048
     Dates: start: 20240127, end: 20240216
  16. VONOPRAZAN FUMARATE [Concomitant]
     Active Substance: VONOPRAZAN FUMARATE
     Dosage: TABLET, ORALLY DISINTEGRATING
     Route: 048
     Dates: start: 20231225, end: 20240119
  17. AMINO ACIDS\DEXTROSE\ELECTROLYTES NOS\SOYBEAN OIL\VITAMINS [Concomitant]
     Active Substance: AMINO ACIDS\DEXTROSE\ELECTROLYTES NOS\SOYBEAN OIL\VITAMINS
     Indication: Product used for unknown indication
     Dates: start: 20240120, end: 20240124
  18. AMINO ACIDS\DEXTROSE\ELECTROLYTES NOS\SOYBEAN OIL\VITAMINS [Concomitant]
     Active Substance: AMINO ACIDS\DEXTROSE\ELECTROLYTES NOS\SOYBEAN OIL\VITAMINS
     Dates: start: 20240125, end: 20240125
  19. AMINO ACIDS\DEXTROSE\ELECTROLYTES NOS\SOYBEAN OIL\VITAMINS [Concomitant]
     Active Substance: AMINO ACIDS\DEXTROSE\ELECTROLYTES NOS\SOYBEAN OIL\VITAMINS
     Dates: start: 20240126, end: 20240126
  20. AMINO ACIDS\DEXTROSE\ELECTROLYTES NOS\SOYBEAN OIL\VITAMINS [Concomitant]
     Active Substance: AMINO ACIDS\DEXTROSE\ELECTROLYTES NOS\SOYBEAN OIL\VITAMINS
     Dates: start: 20240127, end: 20240201
  21. AMINO ACIDS\DEXTROSE\ELECTROLYTES NOS\SOYBEAN OIL\VITAMINS [Concomitant]
     Active Substance: AMINO ACIDS\DEXTROSE\ELECTROLYTES NOS\SOYBEAN OIL\VITAMINS
     Dates: start: 20240216, end: 20240216
  22. AMINO ACIDS\DEXTROSE\ELECTROLYTES NOS\SOYBEAN OIL\VITAMINS [Concomitant]
     Active Substance: AMINO ACIDS\DEXTROSE\ELECTROLYTES NOS\SOYBEAN OIL\VITAMINS
     Dates: start: 20231225, end: 20240119
  23. DEXTROMETHORPHAN HYDROBROMIDE [Concomitant]
     Active Substance: DEXTROMETHORPHAN HYDROBROMIDE
     Indication: Product used for unknown indication
     Route: 048
     Dates: start: 20240120, end: 20240124
  24. DEXTROMETHORPHAN HYDROBROMIDE [Concomitant]
     Active Substance: DEXTROMETHORPHAN HYDROBROMIDE
     Route: 048
     Dates: start: 20240125, end: 20240125
  25. DEXTROMETHORPHAN HYDROBROMIDE [Concomitant]
     Active Substance: DEXTROMETHORPHAN HYDROBROMIDE
     Route: 048
     Dates: start: 20240126, end: 20240126
  26. DEXTROMETHORPHAN HYDROBROMIDE [Concomitant]
     Active Substance: DEXTROMETHORPHAN HYDROBROMIDE
     Route: 048
     Dates: start: 20240127, end: 20240216
  27. DEXTROMETHORPHAN HYDROBROMIDE [Concomitant]
     Active Substance: DEXTROMETHORPHAN HYDROBROMIDE
     Route: 048
     Dates: start: 20231225, end: 20240119
  28. SODIUM CHLORIDE [Concomitant]
     Active Substance: SODIUM CHLORIDE
     Indication: Product used for unknown indication
     Route: 048
     Dates: start: 20231225, end: 20240119
  29. SODIUM CHLORIDE [Concomitant]
     Active Substance: SODIUM CHLORIDE
     Route: 048
     Dates: start: 20240120, end: 20240124
  30. SODIUM CHLORIDE [Concomitant]
     Active Substance: SODIUM CHLORIDE
     Route: 048
     Dates: start: 20240125, end: 20240125
  31. SODIUM CHLORIDE [Concomitant]
     Active Substance: SODIUM CHLORIDE
     Route: 048
     Dates: start: 20240126, end: 20240126
  32. SODIUM CHLORIDE [Concomitant]
     Active Substance: SODIUM CHLORIDE
     Route: 048
     Dates: start: 20240127, end: 20240216
  33. MIYA-BM [Concomitant]
     Active Substance: CLOSTRIDIUM BUTYRICUM SPORES STRAIN M-55
     Indication: Product used for unknown indication
     Route: 048
     Dates: start: 20231225, end: 20240107
  34. MIYA-BM [Concomitant]
     Active Substance: CLOSTRIDIUM BUTYRICUM SPORES STRAIN M-55
     Route: 048
     Dates: start: 20240120, end: 20240124
  35. MIYA-BM [Concomitant]
     Active Substance: CLOSTRIDIUM BUTYRICUM SPORES STRAIN M-55
     Route: 048
     Dates: start: 20240125, end: 20240125
  36. MIYA-BM [Concomitant]
     Active Substance: CLOSTRIDIUM BUTYRICUM SPORES STRAIN M-55
     Route: 048
     Dates: start: 20240126, end: 20240126
  37. MIYA-BM [Concomitant]
     Active Substance: CLOSTRIDIUM BUTYRICUM SPORES STRAIN M-55
     Route: 048
     Dates: start: 20240127, end: 20240216
  38. MIYA-BM [Concomitant]
     Active Substance: CLOSTRIDIUM BUTYRICUM SPORES STRAIN M-55
     Route: 048
     Dates: start: 20240106, end: 20240119
  39. SULFAMETHOXAZOLE\TRIMETHOPRIM [Concomitant]
     Active Substance: SULFAMETHOXAZOLE\TRIMETHOPRIM
     Indication: Product used for unknown indication
     Route: 048
     Dates: start: 20240112, end: 20240117
  40. SULFAMETHOXAZOLE\TRIMETHOPRIM [Concomitant]
     Active Substance: SULFAMETHOXAZOLE\TRIMETHOPRIM
     Route: 048
     Dates: start: 20240119, end: 20240208
  41. SULFAMETHOXAZOLE\TRIMETHOPRIM [Concomitant]
     Active Substance: SULFAMETHOXAZOLE\TRIMETHOPRIM
     Route: 048
     Dates: start: 20231226, end: 20240111
  42. TENELIGLIPTIN HYDROBROMIDE HYDRATE [Concomitant]
     Active Substance: TENELIGLIPTIN HYDROBROMIDE HYDRATE
     Indication: Product used for unknown indication
     Dosage: TABLET, ORALLY DISINTEGRATING
     Route: 048
     Dates: start: 20240120, end: 20240122
  43. TENELIGLIPTIN HYDROBROMIDE HYDRATE [Concomitant]
     Active Substance: TENELIGLIPTIN HYDROBROMIDE HYDRATE
     Dosage: TABLET, ORALLY DISINTEGRATING
     Route: 048
     Dates: start: 20240123, end: 20240126
  44. TENELIGLIPTIN HYDROBROMIDE HYDRATE [Concomitant]
     Active Substance: TENELIGLIPTIN HYDROBROMIDE HYDRATE
     Dosage: TABLET, ORALLY DISINTEGRATING
     Route: 048
     Dates: start: 20240127, end: 20240201
  45. TENELIGLIPTIN HYDROBROMIDE HYDRATE [Concomitant]
     Active Substance: TENELIGLIPTIN HYDROBROMIDE HYDRATE
     Dosage: TABLET, ORALLY DISINTEGRATING
     Route: 048
     Dates: start: 20240202, end: 20240202
  46. TENELIGLIPTIN HYDROBROMIDE HYDRATE [Concomitant]
     Active Substance: TENELIGLIPTIN HYDROBROMIDE HYDRATE
     Dosage: TABLET, ORALLY DISINTEGRATING
     Route: 048
     Dates: start: 20240203, end: 20240208
  47. TENELIGLIPTIN HYDROBROMIDE HYDRATE [Concomitant]
     Active Substance: TENELIGLIPTIN HYDROBROMIDE HYDRATE
     Dosage: TABLET, ORALLY DISINTEGRATING
     Route: 048
     Dates: start: 20231228, end: 20240104
  48. TENELIGLIPTIN HYDROBROMIDE HYDRATE [Concomitant]
     Active Substance: TENELIGLIPTIN HYDROBROMIDE HYDRATE
     Dosage: TABLET, ORALLY DISINTEGRATING
     Route: 048
     Dates: start: 20240106, end: 20240114
  49. TENELIGLIPTIN HYDROBROMIDE HYDRATE [Concomitant]
     Active Substance: TENELIGLIPTIN HYDROBROMIDE HYDRATE
     Dosage: TABLET, ORALLY DISINTEGRATING
     Route: 048
     Dates: start: 20240115, end: 20240119
  50. GLUFAST OD [Concomitant]
     Indication: Product used for unknown indication
     Dosage: TABLET, ORALLY DISINTEGRATING
     Route: 048
     Dates: start: 20240120, end: 20240121
  51. GLUFAST OD [Concomitant]
     Dosage: TABLET, ORALLY DISINTEGRATING
     Route: 048
     Dates: start: 20240122, end: 20240201
  52. GLUFAST OD [Concomitant]
     Dosage: TABLET, ORALLY DISINTEGRATING
     Route: 048
     Dates: start: 20240202, end: 20240202
  53. GLUFAST OD [Concomitant]
     Dosage: TABLET, ORALLY DISINTEGRATING
     Route: 048
     Dates: start: 20240203, end: 20240208
  54. GLUFAST OD [Concomitant]
     Dosage: TABLET, ORALLY DISINTEGRATING
     Route: 048
     Dates: start: 20240116, end: 20240119
  55. VOGLIBOSE [Concomitant]
     Active Substance: VOGLIBOSE
     Indication: Product used for unknown indication
     Dosage: TABLET, ORALLY DISINTEGRATING
     Route: 048
     Dates: start: 20240120, end: 20240120
  56. VOGLIBOSE [Concomitant]
     Active Substance: VOGLIBOSE
     Dosage: TABLET, ORALLY DISINTEGRATING
     Route: 048
     Dates: start: 20240121, end: 20240201
  57. VOGLIBOSE [Concomitant]
     Active Substance: VOGLIBOSE
     Dosage: TABLET, ORALLY DISINTEGRATING
     Route: 048
     Dates: start: 20240202, end: 20240202
  58. VOGLIBOSE [Concomitant]
     Active Substance: VOGLIBOSE
     Dosage: TABLET, ORALLY DISINTEGRATING
     Route: 048
     Dates: start: 20240203, end: 20240215
  59. VOGLIBOSE [Concomitant]
     Active Substance: VOGLIBOSE
     Dosage: TABLET, ORALLY DISINTEGRATING
     Route: 048
     Dates: start: 20240117, end: 20240119
  60. PIPERACILLIN SODIUM\TAZOBACTAM SODIUM [Concomitant]
     Active Substance: PIPERACILLIN SODIUM\TAZOBACTAM SODIUM
     Indication: Product used for unknown indication
     Route: 041
     Dates: start: 20231225, end: 20231227
  61. SODIUM CHLORIDE [Concomitant]
     Active Substance: SODIUM CHLORIDE
     Indication: Product used for unknown indication
     Route: 041
     Dates: start: 20231228, end: 20240115
  62. SODIUM CHLORIDE [Concomitant]
     Active Substance: SODIUM CHLORIDE
     Route: 042
     Dates: start: 20231225, end: 20231225
  63. SODIUM CHLORIDE [Concomitant]
     Active Substance: SODIUM CHLORIDE
     Route: 041
     Dates: start: 20231225, end: 20231227
  64. FENTANYL [Concomitant]
     Active Substance: FENTANYL
     Indication: Product used for unknown indication
     Route: 042
     Dates: start: 20231225, end: 20231225
  65. CALCIUM CHLORIDE\POTASSIUM CHLORIDE\SODIUM ACETATE\SODIUM CHLORIDE [Concomitant]
     Active Substance: CALCIUM CHLORIDE\POTASSIUM CHLORIDE\SODIUM ACETATE\SODIUM CHLORIDE
     Indication: Product used for unknown indication
     Route: 041
     Dates: start: 20231225, end: 20231225
  66. LEVOFLOXACIN HEMIHYDRATE [Concomitant]
     Active Substance: LEVOFLOXACIN
     Indication: Product used for unknown indication
     Route: 041
     Dates: start: 20231225, end: 20231227
  67. AMPICILLIN SODIUM\SULBACTAM SODIUM [Concomitant]
     Active Substance: AMPICILLIN SODIUM\SULBACTAM SODIUM
     Indication: Product used for unknown indication
     Route: 041
     Dates: start: 20231228, end: 20240115

REACTIONS (3)
  - Immune-mediated lung disease [Recovering/Resolving]
  - Pleural effusion [Unknown]
  - Oesophageal squamous cell carcinoma recurrent [Unknown]

NARRATIVE: CASE EVENT DATE: 20240309
